FAERS Safety Report 7693408 (Version 2)
Quarter: 2012Q4

REPORT INFORMATION
  Report Type: 
  Country: US (occurrence: None)
  Receive Date: 20101108
  Receipt Date: 20121025
  Transmission Date: 20130627
  Serious: Yes (Death, Disabling)
  Sender: FDA-Public Use
  Company Number: 741169

PATIENT
  Age: 23 Year
  Sex: Male

DRUGS (3)
  1. FLUDARABINE PHOSPHATE [Suspect]
     Indication: STEM CELL TRANSPLANT
     Dosage: 30 MG/M2 MILLIGRAM(S) /SQ, METER
  2. CYCLOPHOSPHAMIDE [Suspect]
     Indication: STEM CELL TRANSPLANT
     Dosage: 1.2 G/M
  3. RITUXIMAB [Concomitant]

REACTIONS (15)
  - Potentiating drug interaction [None]
  - Brain herniation [None]
  - Blindness [None]
  - Gliosis [None]
  - Encephalopathy [None]
  - Myelopathy [None]
  - Retinal oedema [None]
  - Retinal haemorrhage [None]
  - Neurological decompensation [None]
  - Ocular toxicity [None]
  - Neurotoxicity [None]
  - Demyelination [None]
  - Autoimmune retinopathy [None]
  - Hydrocephalus [None]
  - Optic atrophy [None]
